FAERS Safety Report 24117664 (Version 1)
Quarter: 2024Q3

REPORT INFORMATION
  Report Type: Spontaneous
  Country: GB (occurrence: GB)
  Receive Date: 20240722
  Receipt Date: 20240722
  Transmission Date: 20241016
  Serious: Yes (Hospitalization, Other)
  Sender: CELLTRION
  Company Number: GB-PFIZER INC-PV202400091699

PATIENT

DRUGS (1)
  1. INFLECTRA [Suspect]
     Active Substance: INFLIXIMAB-DYYB
     Indication: Colitis
     Dosage: 365, 6 WEEKLY
     Route: 042
     Dates: start: 20190331

REACTIONS (4)
  - Infection [Unknown]
  - Alcohol abuse [Unknown]
  - Blood test abnormal [Unknown]
  - Weight decreased [Unknown]
